FAERS Safety Report 5856309-8 (Version None)
Quarter: 2008Q3

REPORT INFORMATION
  Report Type: 
  Country: None (occurrence: None)
  Receive Date: 20080821
  Receipt Date: 20080811
  Transmission Date: 20090109
  Serious: Yes (Disabling)
  Sender: FDA-Public Use
  Company Number: GXKR2008IN07587

PATIENT
  Age: 40 Year
  Sex: Male
  Weight: 55 kg

DRUGS (2)
  1. RIFAMPICIN+ISONIAZID+PYRAZINAMIDE+ETHAMBUTOL (NGX)(ETHAMBUTOL DIHYDROC [Suspect]
     Indication: TUBERCULOSIS
     Dosage: 1 DF/DAY, ORAL
     Route: 048
  2. LEVOFLOXACIN [Concomitant]

REACTIONS (1)
  - GOUT [None]
